FAERS Safety Report 15328686 (Version 2)
Quarter: 2018Q4

REPORT INFORMATION
  Report Type: Spontaneous
  Country: DE (occurrence: DE)
  Receive Date: 20180829
  Receipt Date: 20181218
  Transmission Date: 20190204
  Serious: Yes (Other)
  Sender: FDA-Public Use
  Company Number: DE-ROCHE-2176426

PATIENT
  Sex: Male

DRUGS (10)
  1. PREDNISOLONE. [Suspect]
     Active Substance: PREDNISOLONE
     Dosage: 1-0-0
     Route: 065
  2. RITUXIMAB. [Concomitant]
     Active Substance: RITUXIMAB
     Indication: CHOLANGITIS
     Dosage: 375 MG PER M^2 BODY SURFACE AREA WEEKLY FOR 4 WEEKS, THEN EVERY 2 MONTHS FOR 24 MONTHS.
     Route: 065
  3. MYCOPHENOLATE MOFETIL. [Suspect]
     Active Substance: MYCOPHENOLATE MOFETIL
     Indication: CHOLANGITIS
     Route: 065
  4. MYCOPHENOLATE MOFETIL. [Suspect]
     Active Substance: MYCOPHENOLATE MOFETIL
     Indication: AUTOIMMUNE PANCREATITIS
     Dosage: UNKNOWN
     Route: 065
  5. PREDNISOLONE. [Suspect]
     Active Substance: PREDNISOLONE
     Dosage: INCREASED TO 40 MG DAILY
     Route: 065
  6. PREDNISOLONE. [Suspect]
     Active Substance: PREDNISOLONE
     Indication: AUTOIMMUNE PANCREATITIS
     Dosage: UNKNOWN
     Route: 065
  7. PREDNISOLONE. [Suspect]
     Active Substance: PREDNISOLONE
     Indication: CHOLANGITIS
     Dosage: 1-0-0
     Route: 065
  8. AZATHIOPRINE. [Suspect]
     Active Substance: AZATHIOPRINE
     Indication: CHOLANGITIS
     Dosage: 1-0-0
     Route: 065
  9. AZATHIOPRINE. [Suspect]
     Active Substance: AZATHIOPRINE
     Indication: AUTOIMMUNE PANCREATITIS
     Route: 065
  10. RITUXIMAB. [Concomitant]
     Active Substance: RITUXIMAB
     Indication: AUTOIMMUNE PANCREATITIS
     Route: 065

REACTIONS (4)
  - Cholangitis [Recovering/Resolving]
  - Autoimmune pancreatitis [Recovering/Resolving]
  - Bile duct stenosis [Recovering/Resolving]
  - Drug ineffective [Unknown]
